FAERS Safety Report 23863639 (Version 1)
Quarter: 2024Q2

REPORT INFORMATION
  Report Type: Report from Study
  Country: GB (occurrence: GB)
  Receive Date: 20240516
  Receipt Date: 20240516
  Transmission Date: 20240716
  Serious: Yes (Hospitalization)
  Sender: FDA-Public Use
  Company Number: GB-SAMSUNG BIOEPIS-SB-2024-13410

PATIENT
  Age: 38 Year
  Sex: Female

DRUGS (1)
  1. IMRALDI [Suspect]
     Active Substance: ADALIMUMAB
     Indication: Ankylosing spondylitis
     Dosage: 40 MG/0.8 ML
     Route: 058
     Dates: start: 20240424

REACTIONS (13)
  - Hypersensitivity [Unknown]
  - Dyspnoea [Unknown]
  - Malaise [Unknown]
  - Swelling of eyelid [Unknown]
  - Chills [Unknown]
  - Myalgia [Unknown]
  - Pain [Unknown]
  - Hyperhidrosis [Unknown]
  - Pruritus [Unknown]
  - Urticaria [Unknown]
  - Illness [Unknown]
  - Fatigue [Unknown]
  - Nausea [Unknown]
